FAERS Safety Report 23489186 (Version 1)
Quarter: 2024Q1

REPORT INFORMATION
  Report Type: Spontaneous
  Country: FR (occurrence: FR)
  Receive Date: 20240206
  Receipt Date: 20240206
  Transmission Date: 20240410
  Serious: No
  Sender: FDA-Public Use
  Company Number: FR-IPSEN Group, Research and Development-2023-25252

PATIENT
  Age: 69 Year
  Sex: Male

DRUGS (3)
  1. CABOMETYX [Suspect]
     Active Substance: CABOZANTINIB S-MALATE
     Indication: Renal cancer
     Dosage: 40 MG PER DAY
     Route: 065
     Dates: start: 202106
  2. NIVOLUMAB [Suspect]
     Active Substance: NIVOLUMAB
     Indication: Renal cancer
     Dosage: 240 MG, Q2WEEKS
     Route: 065
     Dates: start: 202106
  3. HYPERICUM PERFORATUM WHOLE [Suspect]
     Active Substance: HYPERICUM PERFORATUM WHOLE
     Indication: Product used for unknown indication
     Dosage: UNK
     Route: 065
     Dates: end: 202110

REACTIONS (3)
  - Therapeutic response changed [Unknown]
  - Therapeutic response changed [Unknown]
  - Labelled drug-drug interaction issue [Unknown]

NARRATIVE: CASE EVENT DATE: 20210801
